FAERS Safety Report 8380725-6 (Version None)
Quarter: 2012Q2

REPORT INFORMATION
  Report Type: 
  Country: None (occurrence: None)
  Receive Date: 20120501
  Receipt Date: 20120426
  Transmission Date: 20120825
  Serious: Yes (Other)
  Sender: FDA-Public Use
  Company Number: 2011028068

PATIENT
  Age: 62 Year
  Sex: Female
  Weight: 51.2565 kg

DRUGS (20)
  1. ZOLOFT [Concomitant]
  2. DICYCLOMINE (DICYCLOERINE) [Concomitant]
  3. PRILOSEC [Concomitant]
  4. FENTANYL [Concomitant]
  5. ZOVIRAX [Concomitant]
  6. HYDROCODONE BITARTRATE [Concomitant]
  7. LIDOCAINE/PRILOCAINE (LIDOCAINE) [Concomitant]
  8. HIZENTRA [Suspect]
  9. HIZENTRA [Suspect]
     Indication: IMMUNODEFICIENCY COMMON VARIABLE
     Dosage: (10 G 1X/WEEK, 50ML OVER 1-2 HOURS VIA 2-4 SITES SUBCUTANEOUS)
     Route: 058
     Dates: start: 20110328
  10. HIZENTRA [Suspect]
     Indication: IMMUNODEFICIENCY COMMON VARIABLE
     Dosage: (10 G 1X/WEEK, 50ML OVER 1-2 HOURS VIA 2-4 SITES SUBCUTANEOUS)
     Route: 058
     Dates: start: 20120424
  11. HIZENTRA [Suspect]
     Indication: IMMUNODEFICIENCY COMMON VARIABLE
     Dosage: (10 G 1X/WEEK, 50ML OVER 1-2 HOURS VIA 2-4 SITES SUBCUTANEOUS)
     Route: 058
     Dates: start: 20110328
  12. HIZENTRA [Suspect]
     Indication: IMMUNODEFICIENCY COMMON VARIABLE
     Dosage: (10 G 1X/WEEK, 50ML OVER 1-2 HOURS VIA 2-4 SITES SUBCUTANEOUS)
     Route: 058
     Dates: start: 20120424
  13. DIPHENHYDRAMINE HCL [Concomitant]
  14. MAXALT MLT (RIZATRIPTAN BENZOATE) [Concomitant]
  15. HIZENTRA [Suspect]
  16. ACYCLOVIR [Concomitant]
  17. PERCOCET [Concomitant]
  18. STEROID INJECTION (CORTICOSTEROID NOS) [Suspect]
     Dates: start: 20110327
  19. ACETAMINOPHEN [Concomitant]
  20. HIZENTRA [Suspect]

REACTIONS (7)
  - DYSPNOEA [None]
  - PYREXIA [None]
  - BACK PAIN [None]
  - ANAEMIA [None]
  - GLOSSITIS [None]
  - BLOOD URINE PRESENT [None]
  - GASTRIC INFECTION [None]
